FAERS Safety Report 7444871-3 (Version None)
Quarter: 2011Q2

REPORT INFORMATION
  Report Type: 
  Country: None (occurrence: None)
  Receive Date: 20110429
  Receipt Date: 20110418
  Transmission Date: 20111010
  Serious: Yes (Hospitalization)
  Sender: FDA-Public Use
  Company Number: PHHY2011BR32848

PATIENT
  Sex: Male
  Weight: 100 kg

DRUGS (17)
  1. AZOPT [Concomitant]
     Indication: INTRAOCULAR PRESSURE TEST ABNORMAL
     Dosage: 2 DROPS ON LEFT EYE AND 3 DROPS ON RIGHT EYE TWICE A DAY
     Route: 047
  2. ISOSORBIDE MONONITRATE [Concomitant]
     Indication: CARDIAC DISORDER
     Dosage: 1 DF, BID
     Route: 048
  3. ALCYTAM [Suspect]
  4. ATLANSIL [Concomitant]
     Indication: ARRHYTHMIA
     Dosage: 1 TABLET A DAY FROM MONDAY TO FRIDAY
     Route: 048
  5. TRISORB [Concomitant]
     Indication: EYE DISORDER
     Dosage: AS NEEDED
  6. ALDACTONE [Concomitant]
     Indication: DIURETIC THERAPY
     Dosage: 1 DF, BID
     Route: 048
  7. ALENIA [Concomitant]
     Dosage: 12/400MCG  1 INHALATION WITH EACH ACTIVE INGREDIENT TWICE A DAY
  8. LOSARTAN POTASSIUM [Concomitant]
     Indication: HYPERTENSION
     Dosage: 1 DF, BID
     Route: 048
  9. PERIDAL [Concomitant]
     Indication: PROPHYLAXIS
     Dosage: 10 MG, TID
     Route: 048
  10. ALOIS [Concomitant]
  11. XALATAN [Concomitant]
     Indication: INTRAOCULAR PRESSURE TEST ABNORMAL
     Dosage: 1 DROP AT NIGH IN BOTH EYES
  12. SEROQUEL [Concomitant]
     Indication: SLEEP DISORDER
     Dosage: 1 DF, QHS
     Route: 048
  13. PANTOPRAZOLE [Concomitant]
     Indication: GASTRITIS
     Dosage: 1 DF, QD
     Route: 048
  14. EXELON [Suspect]
     Indication: DEMENTIA ALZHEIMER'S TYPE
     Dosage: 9 MG 1 PATCH EVERY 24 HOURS
     Route: 062
     Dates: start: 20101001
  15. EXELON [Suspect]
     Dosage: 18 MG 1 PATCH EVERY 24 HOURS
     Route: 062
     Dates: start: 20101201
  16. HYDROCHLOROTHIAZIDE [Concomitant]
     Indication: DIURETIC THERAPY
     Route: 048
  17. SPIRIVA [Concomitant]
     Dosage: 2 INHALATIONS ONCE A DAY

REACTIONS (3)
  - CARDIAC DISORDER [None]
  - GAIT DISTURBANCE [None]
  - OEDEMA [None]
